FAERS Safety Report 14771209 (Version 1)
Quarter: 2018Q2

REPORT INFORMATION
  Report Type: Spontaneous
  Country: US (occurrence: US)
  Receive Date: 20180417
  Receipt Date: 20180417
  Transmission Date: 20180711
  Serious: No
  Sender: FDA-Public Use
  Company Number: US-ALLERGAN-1717999US

PATIENT
  Sex: Female

DRUGS (3)
  1. TIMOLOL. [Concomitant]
     Active Substance: TIMOLOL
     Indication: INTRAOCULAR PRESSURE INCREASED
     Dosage: UNK UNK, BID
     Route: 047
  2. LUMIGAN [Suspect]
     Active Substance: BIMATOPROST
     Indication: GLAUCOMA
     Dosage: UNK
     Route: 047
     Dates: start: 201701
  3. LUMIGAN [Suspect]
     Active Substance: BIMATOPROST
     Indication: INTRAOCULAR PRESSURE INCREASED

REACTIONS (2)
  - Intraocular pressure increased [Unknown]
  - Drug dose omission [Unknown]
